FAERS Safety Report 13653282 (Version 1)
Quarter: 2017Q2

REPORT INFORMATION
  Report Type: Spontaneous
  Country: US (occurrence: US)
  Receive Date: 20170614
  Receipt Date: 20170614
  Transmission Date: 20170830
  Serious: No
  Sender: FDA-Public Use
  Company Number: US-ROCHE-1409694

PATIENT
  Sex: Female

DRUGS (3)
  1. XELODA [Suspect]
     Active Substance: CAPECITABINE
     Indication: NEOPLASM MALIGNANT
     Dosage: 600 MG 4 AM 3 PM
     Route: 048
     Dates: start: 20140407
  2. XELODA [Suspect]
     Active Substance: CAPECITABINE
     Dosage: 2000MG IN AM AND 1500MG IN PM; 1 WEEK ON, 1 WEEK OFF
     Route: 048
     Dates: start: 20140430
  3. XELODA [Suspect]
     Active Substance: CAPECITABINE
     Dosage: 7 DAYS ON, 7 DAYS OFF
     Route: 048
     Dates: start: 20140417, end: 20140903

REACTIONS (4)
  - Pain in extremity [Not Recovered/Not Resolved]
  - Dyspepsia [Unknown]
  - Erythema [Not Recovered/Not Resolved]
  - Palmar-plantar erythrodysaesthesia syndrome [Unknown]
